FAERS Safety Report 20259295 (Version 3)
Quarter: 2022Q1

REPORT INFORMATION
  Report Type: Spontaneous
  Country: CO (occurrence: CO)
  Receive Date: 20211230
  Receipt Date: 20220316
  Transmission Date: 20220423
  Serious: Yes (Hospitalization, Other)
  Sender: FDA-Public Use
  Company Number: CO-PFIZER INC-202101835818

PATIENT
  Age: 72 Year
  Sex: Female
  Weight: 80 kg

DRUGS (1)
  1. LYRICA [Suspect]
     Active Substance: PREGABALIN
     Indication: Mononeuropathy
     Dosage: (EVERY 24 HOURS)
     Route: 048
     Dates: start: 20100210

REACTIONS (4)
  - Joint injury [Recovering/Resolving]
  - Pain [Recovering/Resolving]
  - Sensory loss [Unknown]
  - Gait inability [Unknown]

NARRATIVE: CASE EVENT DATE: 20211110
